FAERS Safety Report 4627341-7 (Version None)
Quarter: 2005Q1

REPORT INFORMATION
  Report Type: 
  Country: None (occurrence: None)
  Receive Date: 20050331
  Receipt Date: 20050318
  Transmission Date: 20050727
  Serious: Yes (Other)
  Sender: FDA-Public Use
  Company Number: 2005047816

PATIENT
  Age: 71 Year
  Sex: Male

DRUGS (7)
  1. CELEBREX [Suspect]
     Indication: RHEUMATOID ARTHRITIS
     Dosage: 400 MG (200 MG, 2 IN 1 D); ORAL
     Route: 048
     Dates: start: 20041020, end: 20050210
  2. FOLIC ACID [Concomitant]
  3. SULFASALAZINE [Concomitant]
  4. SIMVASTATIN [Concomitant]
  5. LANSOPRAZOLE [Concomitant]
  6. ACETYL SALICYLIC ACID USP BAT [Concomitant]
  7. SOTALOL HCL [Concomitant]

REACTIONS (1)
  - DRUG WITHDRAWAL SYNDROME [None]
